FAERS Safety Report 15243871 (Version 2)
Quarter: 2019Q1

REPORT INFORMATION
  Report Type: Spontaneous
  Country: US (occurrence: US)
  Receive Date: 20180806
  Receipt Date: 20190311
  Transmission Date: 20190417
  Serious: No
  Sender: FDA-Public Use
  Company Number: US-SA-2018SA211075

PATIENT
  Sex: Female

DRUGS (9)
  1. ATENOLOL. [Concomitant]
     Active Substance: ATENOLOL
     Dosage: UNK
  2. FAMOTIDINE. [Concomitant]
     Active Substance: FAMOTIDINE
     Dosage: UNK
  3. SPIRONOLACTONE. [Concomitant]
     Active Substance: SPIRONOLACTONE
     Dosage: UNK
  4. CERAVE ITCH RELIEF MOISTURIZING [Concomitant]
     Active Substance: PRAMOXINE HYDROCHLORIDE
     Dosage: UNK
  5. LISINOPRIL H [Concomitant]
     Dosage: UNK
  6. FUROSEMIDE. [Concomitant]
     Active Substance: FUROSEMIDE
     Dosage: UNK
  7. AUBAGIO [Suspect]
     Active Substance: TERIFLUNOMIDE
     Indication: MULTIPLE SCLEROSIS
     Dosage: 14 MG, QD
     Route: 048
     Dates: start: 20150710
  8. SIMVASTATIN. [Concomitant]
     Active Substance: SIMVASTATIN
     Dosage: UNK
  9. ANTACID [CALCIUM CARBONATE] [Concomitant]
     Dosage: UNK

REACTIONS (3)
  - Dizziness [Recovered/Resolved]
  - Confusional state [Recovered/Resolved]
  - Abdominal pain [Not Recovered/Not Resolved]
